FAERS Safety Report 17763481 (Version 1)
Quarter: 2020Q2

REPORT INFORMATION
  Report Type: Spontaneous
  Country: ES (occurrence: ES)
  Receive Date: 20200509
  Receipt Date: 20200509
  Transmission Date: 20200714
  Serious: Yes (Hospitalization)
  Sender: FDA-Public Use
  Company Number: ES-TEVA-2020-ES-1231958

PATIENT
  Age: 73 Year
  Sex: Male

DRUGS (8)
  1. OMEPRAZOL (2141A) [Concomitant]
     Active Substance: OMEPRAZOLE
     Dosage: 20 MG
     Route: 048
  2. UROREC 4 MG CAPSULAS DURAS, 30 CAPSULAS [Concomitant]
     Dosage: 4 MG
     Route: 048
  3. SIMVASTATINA + EZETIMIBA [Concomitant]
     Dosage: 1 DF
     Route: 048
  4. XALATAN 50 MICROGRAMOS/ML COLIRIO EN SOLUCION , 1 FRASCO DE 2,5 ML [Concomitant]
     Dosage: 50 MICROGRAMS / ML ,1 BOTTLE OF 2.5 ML
     Route: 047
  5. EMCONCOR 5 MG COMPRIMIDOS RECUBIERTOS CON PELICULA , 60 COMPRIMIDOS [Concomitant]
     Dosage: 5 MG
     Route: 048
  6. LEVOFLOXACINO (2791A) [Suspect]
     Active Substance: LEVOFLOXACIN
     Indication: RESPIRATORY TRACT INFECTION
     Dosage: 500 MG
     Route: 048
     Dates: start: 20161002, end: 20161003
  7. LOSARTAN (7157A) [Concomitant]
     Active Substance: LOSARTAN
     Dosage: 50 MG
     Route: 048
  8. ZYLORIC 100 MG COMPRIMIDOS, 25 COMPRIMIDOS [Concomitant]
     Dosage: 100 MG
     Route: 048

REACTIONS (3)
  - Arthralgia [Recovered/Resolved]
  - Tendon pain [Recovered/Resolved]
  - Purpura [Recovered/Resolved]

NARRATIVE: CASE EVENT DATE: 20161003
